FAERS Safety Report 5788375-2 (Version None)
Quarter: 2008Q2

REPORT INFORMATION
  Report Type: 
  Country: None (occurrence: None)
  Receive Date: 20080625
  Receipt Date: 20080616
  Transmission Date: 20081010
  Serious: Yes (Other)
  Sender: FDA-Public Use
  Company Number: US-PFIZER INC-2008051122

PATIENT
  Sex: Male
  Weight: 113.4 kg

DRUGS (5)
  1. LIPITOR [Suspect]
     Indication: BLOOD CHOLESTEROL INCREASED
  2. LOPID [Suspect]
     Indication: BLOOD CHOLESTEROL INCREASED
  3. ACCURETIC [Suspect]
     Indication: BLOOD PRESSURE
     Dosage: TEXT:20/25MG DAILY EVERY DAYTDD:20/25MG
  4. ZOLOFT [Suspect]
     Indication: EMOTIONAL DISORDER
  5. ASPIRIN [Concomitant]
     Dosage: FREQ:DAILY

REACTIONS (2)
  - BLOOD GLUCOSE ABNORMAL [None]
  - BLOOD TRIGLYCERIDES ABNORMAL [None]
